FAERS Safety Report 10112217 (Version 2)
Quarter: 2014Q2

REPORT INFORMATION
  Report Type: Report from Study
  Country: US (occurrence: US)
  Receive Date: 20140425
  Receipt Date: 20140505
  Transmission Date: 20141212
  Serious: Yes (Hospitalization)
  Sender: FDA-Public Use
  Company Number: US-TEVA-476901USA

PATIENT
  Age: 76 Year
  Sex: Male
  Weight: 73 kg

DRUGS (4)
  1. DACARBAZINE [Suspect]
     Indication: SARCOMA
     Dosage: 47.619 MG/M2 DAILY;
     Route: 041
     Dates: start: 20120111
  2. LANTUS [Concomitant]
  3. DOCUSATE [Concomitant]
  4. VICODIN [Concomitant]

REACTIONS (1)
  - Pneumonia [Recovered/Resolved]
